FAERS Safety Report 7769771-0 (Version None)
Quarter: 2011Q3

REPORT INFORMATION
  Report Type: 
  Country: None (occurrence: None)
  Receive Date: 20110922
  Receipt Date: 20110524
  Transmission Date: 20111222
  Serious: No
  Sender: FDA-Public Use
  Company Number: US-ASTRAZENECA-2011SE31762

PATIENT
  Age: 30 Year
  Sex: Female
  Weight: 113.4 kg

DRUGS (6)
  1. LISINOPRIL [Concomitant]
     Indication: HYPERTENSION
  2. SEROQUEL [Suspect]
     Indication: BIPOLAR I DISORDER
     Route: 048
     Dates: end: 20110501
  3. SEROQUEL [Suspect]
     Indication: SLEEP DISORDER
     Route: 048
     Dates: end: 20110501
  4. COPAXIN [Concomitant]
     Indication: MULTIPLE SCLEROSIS
  5. LYRICA [Concomitant]
     Indication: FIBROMYALGIA
  6. GENERIC XANAX [Concomitant]
     Indication: ANXIETY

REACTIONS (5)
  - INSOMNIA [None]
  - OFF LABEL USE [None]
  - MEMORY IMPAIRMENT [None]
  - INCREASED APPETITE [None]
  - DRUG DOSE OMISSION [None]
